FAERS Safety Report 9606630 (Version 1)
Quarter: 2013Q4

REPORT INFORMATION
  Report Type: Spontaneous
  Country: US (occurrence: US)
  Receive Date: 20131008
  Receipt Date: 20131008
  Transmission Date: 20140711
  Serious: No
  Sender: FDA-Public Use
  Company Number: US-AMGEN-USASP2013058559

PATIENT
  Age: 68 Year
  Sex: Female

DRUGS (7)
  1. PROLIA [Suspect]
     Indication: OSTEOPOROSIS POSTMENOPAUSAL
     Dosage: UNK
     Route: 065
     Dates: start: 20130717
  2. LEXAPRO [Concomitant]
  3. MUCINEX [Concomitant]
  4. SPIRIVA [Concomitant]
  5. ADVAIR [Concomitant]
  6. CELEBREX [Concomitant]
  7. RESTORIL                           /00054301/ [Concomitant]

REACTIONS (3)
  - Joint stiffness [Recovered/Resolved]
  - Arthralgia [Not Recovered/Not Resolved]
  - Pain in extremity [Not Recovered/Not Resolved]
